FAERS Safety Report 16244138 (Version 1)
Quarter: 2019Q2

REPORT INFORMATION
  Report Type: Spontaneous
  Country: US (occurrence: US)
  Receive Date: 20190426
  Receipt Date: 20190426
  Transmission Date: 20190711
  Serious: Yes (Hospitalization)
  Sender: FDA-Public Use
  Company Number: US-JNJFOC-20190435123

PATIENT
  Age: 51 Year
  Sex: Male
  Weight: 70.31 kg

DRUGS (1)
  1. INVOKANA [Suspect]
     Active Substance: CANAGLIFLOZIN
     Indication: PRODUCT USED FOR UNKNOWN INDICATION
     Route: 048

REACTIONS (6)
  - Osteomyelitis [Not Recovered/Not Resolved]
  - Post procedural haemorrhage [Unknown]
  - Amputation [Unknown]
  - Diabetic ketoacidosis [Unknown]
  - Diabetic foot infection [Unknown]
  - Diabetes mellitus inadequate control [Unknown]

NARRATIVE: CASE EVENT DATE: 201702
